FAERS Safety Report 5584047-8 (Version None)
Quarter: 2008Q1

REPORT INFORMATION
  Report Type: 
  Country: None (occurrence: None)
  Receive Date: 20080108
  Receipt Date: 20071231
  Transmission Date: 20080703
  Serious: Yes (Death, Hospitalization, Other)
  Sender: FDA-Public Use
  Company Number: US-ROCHE-539058

PATIENT
  Age: 46 Year
  Sex: Male
  Weight: 59 kg

DRUGS (5)
  1. CELLCEPT [Suspect]
     Route: 048
     Dates: start: 20000101, end: 20071101
  2. CELLCEPT [Suspect]
     Route: 048
     Dates: start: 20071101, end: 20071222
  3. HEPARIN [Suspect]
     Route: 065
  4. RAPAMUNE [Concomitant]
  5. PREDNISONE [Concomitant]
     Route: 048

REACTIONS (6)
  - COLLAPSE OF LUNG [None]
  - FALL [None]
  - HEAD INJURY [None]
  - PULMONARY MYCOSIS [None]
  - PYREXIA [None]
  - RENAL IMPAIRMENT [None]
